FAERS Safety Report 21209907 (Version 3)
Quarter: 2022Q3

REPORT INFORMATION
  Report Type: Spontaneous
  Country: CA (occurrence: CA)
  Receive Date: 20220813
  Receipt Date: 20220909
  Transmission Date: 20221026
  Serious: Yes (Life-Threatening, Hospitalization, Other)
  Sender: FDA-Public Use
  Company Number: CA-NOVARTISPH-NVSC2022CA182003

PATIENT
  Age: 64 Year
  Sex: Female

DRUGS (8)
  1. GLYCOPYRROLATE\INDACATEROL\MOMETASONE FUROATE [Suspect]
     Active Substance: GLYCOPYRROLATE\INDACATEROL\MOMETASONE FUROATE
     Indication: Asthma
     Dosage: UNK, QD
     Route: 065
     Dates: start: 20220704, end: 20220722
  2. VENTOLIN [Concomitant]
     Active Substance: ALBUTEROL SULFATE
     Indication: Product used for unknown indication
     Dosage: UNK
     Route: 065
  3. ADVAIR HFA [Concomitant]
     Active Substance: FLUTICASONE PROPIONATE\SALMETEROL XINAFOATE
     Indication: Product used for unknown indication
     Dosage: UNK
     Route: 065
  4. PLAVIX [Concomitant]
     Active Substance: CLOPIDOGREL BISULFATE
     Indication: Product used for unknown indication
     Dosage: UNK
     Route: 065
  5. LIPITOR [Concomitant]
     Active Substance: ATORVASTATIN CALCIUM
     Indication: Product used for unknown indication
     Dosage: UNK
     Route: 065
  6. RAMIPRIL [Concomitant]
     Active Substance: RAMIPRIL
     Indication: Product used for unknown indication
     Dosage: UNK
     Route: 065
  7. NORVASC [Concomitant]
     Active Substance: AMLODIPINE BESYLATE
     Indication: Product used for unknown indication
     Dosage: UNK
     Route: 065
  8. PROMISE [Concomitant]
     Indication: Product used for unknown indication
     Dosage: UNK
     Route: 065

REACTIONS (21)
  - Myocardial infarction [Recovered/Resolved with Sequelae]
  - Chest discomfort [Unknown]
  - Pain in extremity [Unknown]
  - Pain in jaw [Unknown]
  - Dyspnoea [Unknown]
  - Dizziness [Unknown]
  - Hyperhidrosis [Unknown]
  - Pallor [Unknown]
  - Palpitations [Unknown]
  - Restlessness [Unknown]
  - Cold sweat [Unknown]
  - Nasopharyngitis [Unknown]
  - Blood potassium decreased [Recovered/Resolved with Sequelae]
  - Blood magnesium decreased [Recovered/Resolved with Sequelae]
  - Sluggishness [Recovered/Resolved with Sequelae]
  - Decreased appetite [Recovered/Resolved with Sequelae]
  - Fatigue [Recovered/Resolved with Sequelae]
  - Dysphonia [Recovered/Resolved with Sequelae]
  - Fall [Unknown]
  - Somnolence [Unknown]
  - Asthenia [Unknown]
